FAERS Safety Report 6726962-5 (Version None)
Quarter: 2010Q2

REPORT INFORMATION
  Report Type: 
  Country: None (occurrence: None)
  Receive Date: 20100517
  Receipt Date: 20100506
  Transmission Date: 20101027
  Serious: No
  Sender: FDA-Public Use
  Company Number: 2009BI041391

PATIENT
  Age: 40 Year
  Sex: Female

DRUGS (1)
  1. TYSABRI [Suspect]
     Indication: MULTIPLE SCLEROSIS
     Route: 042
     Dates: start: 20081113

REACTIONS (9)
  - ASTHENIA [None]
  - FAECAL INCONTINENCE [None]
  - FATIGUE [None]
  - INSOMNIA [None]
  - MEDICAL DEVICE REMOVAL [None]
  - MOBILITY DECREASED [None]
  - MUSCLE SPASMS [None]
  - PAIN [None]
  - URINARY INCONTINENCE [None]
